FAERS Safety Report 8981916 (Version 1)
Quarter: 2012Q4

REPORT INFORMATION
  Report Type: 
  Country: US (occurrence: US)
  Receive Date: 20121212
  Receipt Date: 20121212
  Transmission Date: 20130627
  Serious: Yes (Death, Hospitalization, Other)
  Sender: FDA-Public Use
  Company Number: US-ASTELLAS-1109264

PATIENT
  Sex: Male

DRUGS (8)
  1. TARCEVA [Suspect]
     Indication: RENAL CANCER
     Route: 065
  2. AVASTIN [Suspect]
     Indication: PRODUCT USED FOR UNKNOWN INDICATION
     Route: 065
  3. ADRIAMYCIN PFS [Concomitant]
  4. VINCRISTIN [Concomitant]
  5. DOXORUBICIN HCL [Concomitant]
  6. ZOMETA [Concomitant]
  7. GALLIUM NITRATE [Concomitant]
  8. THALIDOMIDE [Concomitant]

REACTIONS (6)
  - Death [Fatal]
  - Lung infection [Unknown]
  - Confusional state [Unknown]
  - Rash [Unknown]
  - Malaise [Unknown]
  - Cough [Unknown]
